FAERS Safety Report 12600653 (Version 1)
Quarter: 2016Q3

REPORT INFORMATION
  Report Type: Other
  Country: None (occurrence: US)
  Receive Date: 20160727
  Receipt Date: 20160727
  Transmission Date: 20161109
  Serious: Yes (Other)
  Sender: FDA-Public Use
  Company Number: US-GUTHY-RENKER LLC-1055647

PATIENT
  Age: 65 Year
  Sex: Female

DRUGS (2)
  1. IT COSMETICS BYE BYE FOUNDATION SPF 50+ [Suspect]
     Active Substance: TITANIUM DIOXIDE\ZINC OXIDE
     Indication: PROPHYLAXIS AGAINST SOLAR RADIATION
     Route: 061
     Dates: start: 20160523, end: 20160711
  2. PAIN MEDICATIONS, VITAMIN D, AND CORTICOSTERIODS [Concomitant]

REACTIONS (8)
  - Erythema [None]
  - Contusion [None]
  - Lacrimation increased [Not Recovered/Not Resolved]
  - Malaise [None]
  - Fall [None]
  - Hepatomegaly [None]
  - Ammonia increased [None]
  - Rash [None]

NARRATIVE: CASE EVENT DATE: 20160711
